FAERS Safety Report 9015516 (Version 1)
Quarter: 2013Q1

REPORT INFORMATION
  Report Type: Spontaneous
  Country: US (occurrence: None)
  Receive Date: 20130110
  Receipt Date: 20130110
  Transmission Date: 20140127
  Serious: Yes (Life-Threatening)
  Sender: FDA-Public Use
  Company Number: None

PATIENT
  Age: 3 Year
  Sex: Female
  Weight: 20.9 kg

DRUGS (1)
  1. PRIVIGEN IVIG 10% CSL BEHRING [Suspect]
     Indication: KAWASAKI^S DISEASE
     Dosage: 42 GRAMS ONCE IV
     Route: 042
     Dates: start: 20121231, end: 20130101

REACTIONS (1)
  - Haemolysis [None]
